FAERS Safety Report 8553816-4 (Version None)
Quarter: 2012Q3

REPORT INFORMATION
  Report Type: 
  Country: None (occurrence: None)
  Receive Date: 20120731
  Receipt Date: 20120727
  Transmission Date: 20120928
  Serious: Yes (Hospitalization, Other)
  Sender: FDA-Public Use
  Company Number: US-PFIZER INC-2012113223

PATIENT
  Sex: Female

DRUGS (3)
  1. MEDROL [Suspect]
     Indication: RHEUMATOID ARTHRITIS
     Dosage: UNK
  2. METHOTREXATE SODIUM [Suspect]
     Indication: RHEUMATOID ARTHRITIS
     Dosage: UNK
  3. DILAUDID [Suspect]
     Dosage: UNK

REACTIONS (8)
  - ARTHRITIS BACTERIAL [None]
  - RHEUMATOID ARTHRITIS [None]
  - POISONING [None]
  - JOINT DISLOCATION [None]
  - BONE DISORDER [None]
  - WHITE BLOOD CELL COUNT INCREASED [None]
  - DRUG INEFFECTIVE [None]
  - INFLAMMATION [None]
